FAERS Safety Report 9519711 (Version 1)
Quarter: 2013Q3

REPORT INFORMATION
  Report Type: Spontaneous
  Country: US (occurrence: None)
  Receive Date: 20130911
  Receipt Date: 20130911
  Transmission Date: 20140515
  Serious: Yes (Life-Threatening, Hospitalization)
  Sender: FDA-Public Use
  Company Number: None

PATIENT
  Age: 26 Year
  Sex: Female
  Weight: 73 kg

DRUGS (1)
  1. SULFAMETHOXAZOLE/TRIMETHOPRIM [Suspect]
     Indication: STAPHYLOCOCCAL ABSCESS
     Dosage: 1 DS TAB BID ORAL
     Route: 048
     Dates: start: 20130501, end: 20130507

REACTIONS (9)
  - Fatigue [None]
  - Abdominal pain [None]
  - Weight decreased [None]
  - Dysphagia [None]
  - Thrombocytopenia [None]
  - Petechiae [None]
  - Ecchymosis [None]
  - Blood blister [None]
  - Oral mucosal blistering [None]
